FAERS Safety Report 5750998-4 (Version None)
Quarter: 2008Q2

REPORT INFORMATION
  Report Type: 
  Country: None (occurrence: None)
  Receive Date: 20080528
  Receipt Date: 20080516
  Transmission Date: 20081010
  Serious: Yes (Hospitalization)
  Sender: FDA-Public Use
  Company Number: HQWYE975710JUL04

PATIENT
  Sex: Female

DRUGS (1)
  1. PREMPRO [Suspect]
     Indication: HORMONE REPLACEMENT THERAPY
     Dosage: UNKNOWN
     Route: 048
     Dates: start: 19970501, end: 19970701

REACTIONS (17)
  - ADRENAL MASS [None]
  - ATELECTASIS [None]
  - BACTERIAL SEPSIS [None]
  - CATHETER SEPSIS [None]
  - COAGULOPATHY [None]
  - ENTEROCOLITIS INFECTIOUS [None]
  - HYPOVITAMINOSIS [None]
  - INTESTINAL INFARCTION [None]
  - INTESTINAL PERFORATION [None]
  - LUNG CONSOLIDATION [None]
  - LUNG INFILTRATION [None]
  - MALNUTRITION [None]
  - MESENTERIC VEIN THROMBOSIS [None]
  - PELVIC FLUID COLLECTION [None]
  - PERITONITIS [None]
  - PULMONARY EMBOLISM [None]
  - SHORT-BOWEL SYNDROME [None]
